FAERS Safety Report 5383325-5 (Version None)
Quarter: 2007Q3

REPORT INFORMATION
  Report Type: 
  Country: None (occurrence: None)
  Receive Date: 20070710
  Receipt Date: 20070628
  Transmission Date: 20080115
  Serious: Yes (Hospitalization, Other)
  Sender: FDA-Public Use
  Company Number: US-PFIZER INC-2007054233

PATIENT
  Sex: Female

DRUGS (1)
  1. LIPITOR [Suspect]
     Indication: BLOOD CHOLESTEROL INCREASED

REACTIONS (7)
  - BLOOD BILIRUBIN INCREASED [None]
  - DECREASED APPETITE [None]
  - NAUSEA [None]
  - PRURITUS [None]
  - RASH [None]
  - URINE ANALYSIS ABNORMAL [None]
  - YELLOW SKIN [None]
